FAERS Safety Report 6241515-3 (Version None)
Quarter: 2009Q2

REPORT INFORMATION
  Report Type: 
  Country: None (occurrence: None)
  Receive Date: 20090623
  Receipt Date: 20041011
  Transmission Date: 20091009
  Serious: Yes (Hospitalization)
  Sender: FDA-Public Use
  Company Number: BR-ROCHE-352428

PATIENT
  Sex: Female
  Weight: 37.5 kg

DRUGS (50)
  1. MYCOPHENOLATE MOFETIL [Suspect]
     Route: 048
     Dates: start: 20030801
  2. MYCOPHENOLATE MOFETIL [Suspect]
     Route: 048
     Dates: start: 20031113
  3. MYCOPHENOLATE MOFETIL [Suspect]
     Route: 048
     Dates: start: 20040113
  4. MYCOPHENOLATE MOFETIL [Suspect]
     Dosage: DRUG NAME REPORTED AS: MICOPHENOLATE MOFETIL.
     Route: 048
     Dates: start: 20050111
  5. DACLIZUMAB [Suspect]
     Dosage: BASELINE VISIT
     Route: 042
     Dates: start: 20030801
  6. DACLIZUMAB [Suspect]
     Route: 042
     Dates: start: 20030815
  7. DACLIZUMAB [Suspect]
     Route: 042
     Dates: start: 20030829
  8. DACLIZUMAB [Suspect]
     Route: 042
     Dates: start: 20030912, end: 20030926
  9. SIROLIMUS [Suspect]
     Route: 048
     Dates: start: 20030801
  10. SIROLIMUS [Suspect]
     Route: 048
     Dates: start: 20030804
  11. SIROLIMUS [Suspect]
     Route: 048
     Dates: start: 20030822
  12. SIROLIMUS [Suspect]
     Route: 048
     Dates: start: 20040303
  13. SIROLIMUS [Suspect]
     Route: 048
     Dates: start: 20040917
  14. SIROLIMUS [Suspect]
     Route: 048
     Dates: start: 20050322
  15. PREDNISONE [Suspect]
     Route: 048
     Dates: start: 20030801
  16. PREDNISONE [Suspect]
     Route: 048
     Dates: start: 20030804
  17. PREDNISONE [Suspect]
     Route: 048
     Dates: start: 20030809
  18. PREDNISONE [Suspect]
     Route: 048
     Dates: start: 20030820
  19. PREDNISONE [Suspect]
     Route: 048
     Dates: start: 20030827
  20. PREDNISONE [Suspect]
     Route: 048
     Dates: start: 20031001
  21. PREDNISONE [Suspect]
     Route: 048
     Dates: start: 20031105
  22. PREDNISONE [Suspect]
     Route: 048
     Dates: start: 20040114
  23. PREDNISONE [Suspect]
     Route: 048
     Dates: start: 20040519
  24. PREDNISONE [Suspect]
     Route: 048
     Dates: start: 20040625
  25. PREDNISONE [Suspect]
     Route: 048
     Dates: start: 20040804
  26. ADALAT [Concomitant]
     Route: 048
     Dates: start: 20030804
  27. ADALAT [Concomitant]
     Dosage: UNITS REPORTED AS: GM
     Route: 048
     Dates: start: 20030807, end: 20040520
  28. OMEPRAZOL [Concomitant]
     Route: 048
     Dates: start: 20031113, end: 20031211
  29. ACYCLOVIR [Concomitant]
     Dosage: UNITS REPORTED AS:GM.
     Route: 048
     Dates: start: 20041027, end: 20041104
  30. AMOXICILLIN [Concomitant]
     Route: 048
     Dates: start: 20031029, end: 20031112
  31. AMOXICILLIN AND CLAVULANATE POTASSIUM [Concomitant]
     Dosage: DRUG NAME: AMOXICILLIN-CLAVULANATE. ROUTE REPORTED AS: PR.
     Route: 048
     Dates: start: 20041015, end: 20041022
  32. AMOXICILLIN AND CLAVULANATE POTASSIUM [Concomitant]
     Dosage: ROUTE REPORTED AS: PO
     Route: 048
     Dates: start: 20041123, end: 20041207
  33. CAPTOPRIL [Concomitant]
     Route: 048
     Dates: start: 20040519
  34. CAPTOPRIL [Concomitant]
     Route: 048
     Dates: start: 20041117
  35. CEFTRIAXONE [Concomitant]
     Route: 042
     Dates: start: 20041022, end: 20041108
  36. CIPROFLOXACIN [Concomitant]
     Route: 042
     Dates: start: 20031113, end: 20031119
  37. CLONIDINE [Concomitant]
     Route: 048
     Dates: start: 20030809
  38. CLONIDINE [Concomitant]
     Route: 048
     Dates: start: 20030813
  39. CLONIDINE [Concomitant]
     Route: 048
     Dates: start: 20030815, end: 20030819
  40. CLONIDINE [Concomitant]
     Route: 048
     Dates: start: 20040407
  41. CLONIDINE [Concomitant]
     Route: 048
     Dates: start: 20040426
  42. CLONIDINE [Concomitant]
     Route: 048
     Dates: start: 20050426
  43. DOBUTAMINE HCL [Concomitant]
     Route: 042
     Dates: start: 20030802, end: 20030805
  44. DOPAMINE HCL [Concomitant]
     Route: 042
     Dates: start: 20030802, end: 20030804
  45. GANCICLOVIR [Concomitant]
     Route: 042
     Dates: start: 20031121, end: 20031212
  46. LEVOFLOXACIN [Concomitant]
     Route: 048
     Dates: start: 20040914, end: 20040928
  47. METRONIDAZOLE [Concomitant]
     Route: 042
     Dates: start: 20031113, end: 20031119
  48. NOREPINEPHRINE BITARTRATE [Concomitant]
     Dosage: FREQUENCY: PN.
     Route: 042
     Dates: start: 20030802, end: 20030804
  49. PRAVASTATIN [Concomitant]
     Route: 048
     Dates: start: 20040127
  50. SULFAMETHOXAZOLE AND TRIMETHOPRIM [Concomitant]
     Dosage: DRUG NAME: SULPHAMETOXAZOLE+TRIMETOPRIM
     Route: 048
     Dates: start: 20030813, end: 20040202

REACTIONS (3)
  - DEHYDRATION [None]
  - GASTROINTESTINAL INFECTION [None]
  - URETERIC STENOSIS [None]
